FAERS Safety Report 9242532 (Version 2)
Quarter: 2013Q2

REPORT INFORMATION
  Report Type: Spontaneous
  Country: JP (occurrence: JP)
  Receive Date: 20130419
  Receipt Date: 20130528
  Transmission Date: 20140414
  Serious: Yes (Hospitalization)
  Sender: FDA-Public Use
  Company Number: JP-BAYER-2013-048306

PATIENT
  Age: 67 Year
  Sex: Male
  Weight: 63 kg

DRUGS (23)
  1. NEXAVAR [Suspect]
     Indication: HEPATOCELLULAR CARCINOMA
     Dosage: DAILY DOSE 400 MG
     Route: 048
     Dates: start: 20130330, end: 20130409
  2. LASIX [Concomitant]
     Indication: OEDEMA PERIPHERAL
     Dosage: 40 MG, QD
     Route: 048
  3. LASIX [Concomitant]
     Indication: OEDEMA PERIPHERAL
     Dosage: 20 MG, QD
     Route: 048
  4. EURODIN [Concomitant]
     Indication: INSOMNIA
     Dosage: 2 MG, HS
     Route: 048
  5. ZYLORIC [Concomitant]
     Indication: HYPERURICAEMIA
     Dosage: 100 MG, OM
     Route: 048
  6. AMINOLEBAN EN [Concomitant]
     Indication: HEPATIC CIRRHOSIS
     Dosage: 50 MG, BID
     Route: 048
  7. AMINOLEBAN EN [Concomitant]
     Indication: HYPOALBUMINAEMIA
  8. URSO [Concomitant]
     Indication: HEPATIC CIRRHOSIS
     Dosage: 100 MG, TID
     Route: 048
  9. MOBIC [Concomitant]
     Dosage: 10 MG, OM
     Route: 048
  10. MUCOSTA [Concomitant]
     Dosage: 100 MG, OM
     Route: 048
  11. MUCOSTA [Concomitant]
     Dosage: 100 MG, BID
     Route: 048
  12. PARIET [Concomitant]
     Indication: GASTROOESOPHAGEAL REFLUX DISEASE
     Dosage: 10 MG, OM
     Route: 048
  13. ALDACTONE A [Concomitant]
     Indication: OEDEMA PERIPHERAL
     Dosage: 50 MG, OM
     Route: 048
  14. ALDACTONE A [Concomitant]
     Indication: OEDEMA PERIPHERAL
     Dosage: 25 MG, QD
     Route: 048
  15. DEPAS [Concomitant]
     Dosage: 1 MG, BID
     Route: 048
  16. GASMOTIN [Concomitant]
     Indication: GASTROOESOPHAGEAL REFLUX DISEASE
     Dosage: 5 MG, TID
     Route: 048
  17. LOXONIN [Concomitant]
     Dosage: 60 MG, BID
     Route: 048
  18. LYRICA [Concomitant]
     Indication: NEURALGIA
     Dosage: 25 MG, BID
     Route: 048
  19. LYRICA [Concomitant]
     Indication: NEURALGIA
     Dosage: 25 MG, OM
     Route: 048
  20. LYRICA [Concomitant]
     Indication: NEURALGIA
     Dosage: 50 MG, QD
     Route: 048
  21. KETOPROFEN [Concomitant]
     Dosage: UNK
     Route: 062
  22. COCARL [Concomitant]
     Dosage: DAILY DOSE 800 MG
     Route: 048
  23. MAGMITT [Concomitant]
     Dosage: 250 MG, TID
     Route: 048

REACTIONS (1)
  - Hepatic encephalopathy [Recovered/Resolved]
